FAERS Safety Report 4473828-X (Version None)
Quarter: 2004Q4

REPORT INFORMATION
  Report Type: 
  Country: None (occurrence: None)
  Receive Date: 20041008
  Receipt Date: 20041008
  Transmission Date: 20050328
  Serious: Yes (Hospitalization)
  Sender: FDA-Public Use
  Company Number: None

PATIENT
  Sex: Male
  Weight: 61.6 kg

DRUGS (7)
  1. IRESSA [Suspect]
     Indication: GLIOBLASTOMA MULTIFORME
     Dosage: 4 TABS PO QD
     Route: 048
     Dates: start: 20040901
  2. RAPAMUNE [Suspect]
     Indication: GLIOBLASTOMA MULTIFORME
     Dosage: 5 TABS PO QD
     Route: 048
     Dates: start: 20040908
  3. DECADRON [Concomitant]
  4. DILANTIN [Concomitant]
  5. SHARK CARTILAGE [Concomitant]
  6. VALTREX [Concomitant]
  7. NEXIUM [Concomitant]

REACTIONS (2)
  - DEEP VEIN THROMBOSIS [None]
  - OEDEMA PERIPHERAL [None]
